FAERS Safety Report 7301037-5 (Version None)
Quarter: 2011Q1

REPORT INFORMATION
  Report Type: 
  Country: None (occurrence: None)
  Receive Date: 20110218
  Receipt Date: 20110207
  Transmission Date: 20110831
  Serious: Yes (Hospitalization, Other)
  Sender: FDA-Public Use
  Company Number: IT-NOVOPROD-315205

PATIENT
  Sex: Female

DRUGS (2)
  1. NOVOMIX 50 FLEXPEN [Suspect]
     Indication: DIABETES MELLITUS
     Dosage: 37 U, QD
     Route: 058
     Dates: start: 20090101
  2. METFORAL [Concomitant]
     Indication: DIABETES MELLITUS
     Dosage: UNK
     Route: 048
     Dates: start: 20090101, end: 20100501

REACTIONS (4)
  - HEAD INJURY [None]
  - BLOOD GLUCOSE DECREASED [None]
  - HYPOGLYCAEMIC UNCONSCIOUSNESS [None]
  - SYNCOPE [None]
